FAERS Safety Report 9684038 (Version 1)
Quarter: 2013Q4

REPORT INFORMATION
  Report Type: Spontaneous
  Country: US (occurrence: US)
  Receive Date: 20131112
  Receipt Date: 20131112
  Transmission Date: 20140711
  Serious: Yes (Other)
  Sender: FDA-Public Use
  Company Number: US-PFIZER INC-2013321894

PATIENT
  Age: 66 Year
  Sex: Female

DRUGS (2)
  1. NEURONTIN [Suspect]
     Dosage: UNK, 3X/DAY
  2. BETASERON [Suspect]
     Dosage: UNK

REACTIONS (3)
  - Intentional drug misuse [Unknown]
  - Multiple sclerosis [Unknown]
  - Stress [Unknown]
